FAERS Safety Report 6478612-3 (Version None)
Quarter: 2009Q4

REPORT INFORMATION
  Report Type: 
  Country: None (occurrence: None)
  Receive Date: 20091207
  Receipt Date: 20091123
  Transmission Date: 20100525
  Serious: Yes (Other)
  Sender: FDA-Public Use
  Company Number: US-MYLANLABS-2009S1020257

PATIENT
  Age: 50 Year
  Sex: Male

DRUGS (3)
  1. AZATHIOPRINE [Suspect]
     Indication: COLITIS ULCERATIVE
     Dosage: 50 MG/DAY
  2. MESALAZINE [Concomitant]
     Dosage: DOSAGE NOT STATED
  3. PREDNISONE [Concomitant]
     Dosage: DOSAGE NOT STATED

REACTIONS (2)
  - HEPATITIS [None]
  - HYPERSENSITIVITY [None]
